FAERS Safety Report 5971980-8 (Version None)
Quarter: 2008Q4

REPORT INFORMATION
  Report Type: 
  Country: None (occurrence: None)
  Receive Date: 20081125
  Receipt Date: 20081110
  Transmission Date: 20090506
  Serious: Yes (Death)
  Sender: FDA-Public Use
  Company Number: 2008AL011711

PATIENT
  Age: 52 Year
  Sex: Female

DRUGS (2)
  1. FEVERALL [Suspect]
     Indication: PAIN
  2. FLOXACILLIN SODIUM [Concomitant]

REACTIONS (8)
  - ANION GAP INCREASED [None]
  - BLOOD CHLORIDE INCREASED [None]
  - BLOOD GASES ABNORMAL [None]
  - BLOOD LACTIC ACID INCREASED [None]
  - CREATININE RENAL CLEARANCE DECREASED [None]
  - METABOLIC ACIDOSIS [None]
  - METASTASIS [None]
  - RESPIRATORY DISTRESS [None]
